FAERS Safety Report 7892333-1 (Version None)
Quarter: 2011Q4

REPORT INFORMATION
  Report Type: 
  Country: None (occurrence: None)
  Receive Date: 20111103
  Receipt Date: 20111103
  Transmission Date: 20120403
  Serious: Yes (Hospitalization)
  Sender: FDA-Public Use
  Company Number: None

PATIENT
  Age: 55 Year
  Sex: Male
  Weight: 89.4 kg

DRUGS (2)
  1. WARFARIN SODIUM [Suspect]
     Indication: VASCULAR OPERATION
     Dosage: 7.5 MG EVERRY DAY PO
     Route: 048
     Dates: start: 20110729, end: 20110927
  2. AMIODARONE HCL [Suspect]
     Dosage: 200 MG EVERY DAY PO
     Route: 048
     Dates: start: 20110729, end: 20110927

REACTIONS (13)
  - BLOOD ALBUMIN DECREASED [None]
  - IATROGENIC INJURY [None]
  - DIZZINESS POSTURAL [None]
  - ISCHAEMIC HEPATITIS [None]
  - HYPOTENSION [None]
  - LIVER INJURY [None]
  - VOMITING [None]
  - TRANSAMINASES INCREASED [None]
  - INTERNATIONAL NORMALISED RATIO ABNORMAL [None]
  - COAGULOPATHY [None]
  - TOXICITY TO VARIOUS AGENTS [None]
  - HAEMOCHROMATOSIS [None]
  - HEPATOTOXICITY [None]
